FAERS Safety Report 9082539 (Version 1)
Quarter: 2013Q1

REPORT INFORMATION
  Report Type: Spontaneous
  Country: US (occurrence: US)
  Receive Date: 20130130
  Receipt Date: 20130130
  Transmission Date: 20140127
  Serious: No
  Sender: FDA-Public Use
  Company Number: US-ABBOTT-12P-163-0964461-00

PATIENT
  Age: 19 Year
  Sex: Female
  Weight: 59.02 kg

DRUGS (2)
  1. HUMIRA 40 MG/0.8 ML PEN [Suspect]
     Indication: CROHN^S DISEASE
     Dosage: 4 PENS FOR LOADING DOSE DAY 1
     Dates: start: 20120731
  2. UNKNOWN MEDICATION(S) [Concomitant]
     Indication: CROHN^S DISEASE

REACTIONS (1)
  - Injection site pain [Unknown]
